FAERS Safety Report 9607741 (Version 1)
Quarter: 2013Q4

REPORT INFORMATION
  Report Type: Spontaneous
  Country: US (occurrence: US)
  Receive Date: 20131009
  Receipt Date: 20131009
  Transmission Date: 20140711
  Serious: Yes (Other)
  Sender: FDA-Public Use
  Company Number: US-ASTELLAS-2013US010458

PATIENT
  Sex: Female

DRUGS (1)
  1. VESICARE [Suspect]
     Indication: NOCTURIA
     Dosage: 5 MG, UID/QD
     Route: 048
     Dates: start: 201307

REACTIONS (2)
  - Drug ineffective for unapproved indication [Unknown]
  - Undifferentiated connective tissue disease [Unknown]
